FAERS Safety Report 17837448 (Version 1)
Quarter: 2020Q2

REPORT INFORMATION
  Report Type: Spontaneous
  Country: US (occurrence: US)
  Receive Date: 20200528
  Receipt Date: 20200528
  Transmission Date: 20200714
  Serious: No
  Sender: FDA-Public Use
  Company Number: US-SHIRE-US201900201

PATIENT
  Age: 48 Year

DRUGS (1)
  1. CINRYZE [Suspect]
     Active Substance: HUMAN C1-ESTERASE INHIBITOR
     Indication: PRODUCT USED FOR UNKNOWN INDICATION
     Dosage: 1000 IU, OTHER, EVERY 4 DAYS
     Route: 065

REACTIONS (1)
  - Antinuclear antibody positive [Not Recovered/Not Resolved]

NARRATIVE: CASE EVENT DATE: 20190103
